FAERS Safety Report 5672732-9 (Version None)
Quarter: 2008Q1

REPORT INFORMATION
  Report Type: 
  Country: None (occurrence: None)
  Receive Date: 20080319
  Receipt Date: 20070703
  Transmission Date: 20080703
  Serious: No
  Sender: FDA-Public Use
  Company Number: US-KINGPHARMUSA00001-K200700840

PATIENT

DRUGS (6)
  1. ALTACE [Suspect]
     Indication: MYOCARDIAL INFARCTION
     Dosage: 10 MG, QD
     Route: 048
     Dates: start: 20070612, end: 20070630
  2. VYTORIN [Concomitant]
     Dates: start: 20050101
  3. PLAVIX [Concomitant]
     Dates: start: 20070612
  4. TOPROL [Concomitant]
     Dates: start: 20070612
  5. PROTONIX  /01263201/ [Concomitant]
     Dates: start: 20070612
  6. HYDROCHLOROTHIAZIDE [Concomitant]
     Dates: start: 20070612

REACTIONS (4)
  - INSOMNIA [None]
  - PRURITUS [None]
  - PYREXIA [None]
  - URTICARIA [None]
